FAERS Safety Report 10221686 (Version 1)
Quarter: 2014Q2

REPORT INFORMATION
  Report Type: Spontaneous
  Country: US (occurrence: None)
  Receive Date: 20140606
  Receipt Date: 20140606
  Transmission Date: 20141212
  Serious: Yes (Death)
  Sender: FDA-Public Use
  Company Number: None

PATIENT
  Age: 71 Year
  Sex: Female

DRUGS (1)
  1. PRADAXA [Suspect]
     Indication: ATRIAL FIBRILLATION
     Dosage: 1 1/2-2 YEARS, TWICE DAILY

REACTIONS (5)
  - Heart rate increased [None]
  - Blood pressure increased [None]
  - Haemorrhage [None]
  - Infusion site haemorrhage [None]
  - Multi-organ failure [None]
